FAERS Safety Report 5718051-3 (Version None)
Quarter: 2008Q2

REPORT INFORMATION
  Report Type: 
  Country: None (occurrence: None)
  Receive Date: 20080425
  Receipt Date: 20080421
  Transmission Date: 20081010
  Serious: Yes (Life-Threatening)
  Sender: FDA-Public Use
  Company Number: JP-ASTRAZENECA-2008SE02111

PATIENT
  Age: 72 Year
  Sex: Female

DRUGS (3)
  1. BLOPRESS [Suspect]
     Indication: CARDIAC FAILURE CHRONIC
     Route: 048
     Dates: start: 20070126, end: 20070222
  2. BLOPRESS [Suspect]
     Route: 048
     Dates: start: 20070223, end: 20070329
  3. BLOPRESS [Suspect]
     Route: 048
     Dates: start: 20070330, end: 20080403

REACTIONS (3)
  - CARDIO-RESPIRATORY ARREST [None]
  - LOSS OF CONSCIOUSNESS [None]
  - VENTRICULAR TACHYCARDIA [None]
